FAERS Safety Report 22048631 (Version 1)
Quarter: 2023Q1

REPORT INFORMATION
  Report Type: Spontaneous
  Country: US (occurrence: None)
  Receive Date: 20230228
  Receipt Date: 20230228
  Transmission Date: 20230417
  Serious: No
  Sender: FDA-Public Use
  Company Number: None

PATIENT
  Age: 49 Year
  Sex: Female

DRUGS (1)
  1. AMBRISENTAN [Suspect]
     Active Substance: AMBRISENTAN
     Indication: Pulmonary arterial hypertension
     Dosage: FREQUENCY : DAILY;?
     Route: 048
     Dates: start: 20190401

REACTIONS (8)
  - Palpitations [None]
  - Abdominal pain [None]
  - Heavy menstrual bleeding [None]
  - Ascites [None]
  - Iron deficiency anaemia [None]
  - Post procedural complication [None]
  - Paracentesis [None]
  - Injection site discharge [None]

NARRATIVE: CASE EVENT DATE: 20230215
